FAERS Safety Report 6137274-5 (Version None)
Quarter: 2009Q1

REPORT INFORMATION
  Report Type: 
  Country: None (occurrence: None)
  Receive Date: 20090330
  Receipt Date: 20090325
  Transmission Date: 20090719
  Serious: Yes (Other)
  Sender: FDA-Public Use
  Company Number: US-JNJCH-2009008328

PATIENT
  Age: 48 Year
  Sex: Male
  Weight: 108.9 kg

DRUGS (2)
  1. ROGAINE [Suspect]
     Indication: ALOPECIA
     Dosage: TEXT:1 DOSE TWICE DAILY
     Route: 061
     Dates: start: 20090301, end: 20090321
  2. INSULIN [Concomitant]
     Indication: DIABETES MELLITUS
     Dosage: TEXT:30 UNITS
     Route: 065

REACTIONS (2)
  - DYSPNOEA [None]
  - VISION BLURRED [None]
